FAERS Safety Report 15498340 (Version 1)
Quarter: 2018Q4

REPORT INFORMATION
  Report Type: Spontaneous
  Country: US (occurrence: US)
  Receive Date: 20181015
  Receipt Date: 20181015
  Transmission Date: 20190205
  Serious: Yes (Other)
  Sender: FDA-Public Use
  Company Number: US-CIPLA LTD.-2018US21685

PATIENT

DRUGS (1)
  1. VALACYCLOVIR [Suspect]
     Active Substance: VALACYCLOVIR HYDROCHLORIDE
     Indication: HERPES ZOSTER
     Dosage: 1000 MG, TID, 8 WEEKS
     Route: 065

REACTIONS (4)
  - Incorrect dose administered [Unknown]
  - Neurotoxicity [Recovered/Resolved]
  - Cotard^s syndrome [Recovered/Resolved]
  - Toxicity to various agents [Recovered/Resolved]
